FAERS Safety Report 12171107 (Version 3)
Quarter: 2016Q2

REPORT INFORMATION
  Report Type: Spontaneous
  Country: JP (occurrence: JP)
  Receive Date: 20160311
  Receipt Date: 20160527
  Transmission Date: 20160815
  Serious: Yes (Death)
  Sender: FDA-Public Use
  Company Number: JP-ASTRAZENECA-2016SE26417

PATIENT
  Age: 60 Year
  Sex: Male
  Weight: 113 kg

DRUGS (8)
  1. NIFEDIPINE CR [Suspect]
     Active Substance: NIFEDIPINE
     Indication: HYPERTENSION
     Route: 048
     Dates: end: 20160220
  2. GLIMEPIRIDE. [Suspect]
     Active Substance: GLIMEPIRIDE
     Indication: DIABETES MELLITUS
     Dosage: 1 MG TWO TIMES A DAY
     Route: 048
     Dates: end: 20160220
  3. PLAVIX [Suspect]
     Active Substance: CLOPIDOGREL BISULFATE
     Indication: ARTERIAL OCCLUSIVE DISEASE
     Route: 048
     Dates: end: 20160220
  4. CILOSTAZOL OD [Suspect]
     Active Substance: CILOSTAZOL
     Indication: ARTERIOSCLEROSIS
     Dosage: 100 MG TWO TIMES A DAY
     Route: 048
     Dates: end: 20160220
  5. FLUITRAN [Suspect]
     Active Substance: TRICHLORMETHIAZIDE
     Indication: HYPERTENSION
     Route: 048
     Dates: end: 20160220
  6. BYDUREON [Suspect]
     Active Substance: EXENATIDE
     Indication: DIABETES MELLITUS
     Route: 058
     Dates: start: 20150905, end: 20160130
  7. DETANTOL R [Suspect]
     Active Substance: BUNAZOSIN HYDROCHLORIDE
     Indication: HYPERTENSION
     Route: 048
     Dates: end: 20160220
  8. UNISIA [Suspect]
     Active Substance: AMLODIPINE BESYLATE\CANDESARTAN CILEXETIL
     Indication: HYPERTENSION
     Dosage: HIGH DOSE, BLOPRESS (CANDESARTAN CILEXETIL) 8 MG + AMLODIPINE (AMLODIPINE BESILATE) 5 MG ONCE/DAY
     Route: 048
     Dates: end: 20160220

REACTIONS (4)
  - Cerebral haemorrhage [Fatal]
  - Hypoglycaemia [Fatal]
  - Cerebral infarction [Fatal]
  - Myocardial infarction [Fatal]

NARRATIVE: CASE EVENT DATE: 2016
